FAERS Safety Report 4686833-5 (Version None)
Quarter: 2005Q2

REPORT INFORMATION
  Report Type: 
  Country: None (occurrence: None)
  Receive Date: 20050608
  Receipt Date: 20050606
  Transmission Date: 20051028
  Serious: No
  Sender: FDA-Public Use
  Company Number: J081-002-001964

PATIENT
  Age: 73 Year
  Sex: Female

DRUGS (8)
  1. ARICEPT [Suspect]
     Indication: SENILE DEMENTIA
     Dosage: 5 MG, 1 IN 1 D, ORAL
     Route: 048
     Dates: start: 20020522, end: 20050512
  2. SINLESTAL (PROBUCOL) [Suspect]
     Indication: HYPERLIPIDAEMIA
     Dosage: ORAL
     Route: 048
     Dates: start: 20010901, end: 20050512
  3. NORVASC [Concomitant]
  4. BUFFERIN [Concomitant]
  5. ZOLPIDEM TARTRATE [Concomitant]
  6. MAGMITT (MAGNESIUM OXIDE [Concomitant]
  7. DORAL [Concomitant]
  8. AMOBAN (ZOPICLONE) [Concomitant]

REACTIONS (2)
  - ANOREXIA [None]
  - RHABDOMYOLYSIS [None]
